FAERS Safety Report 6670995-4 (Version None)
Quarter: 2010Q2

REPORT INFORMATION
  Report Type: 
  Country: None (occurrence: None)
  Receive Date: 20100406
  Receipt Date: 20100406
  Transmission Date: 20101027
  Serious: Yes (Other)
  Sender: FDA-Public Use
  Company Number: None

PATIENT
  Age: 78 Year
  Sex: Male
  Weight: 63.9572 kg

DRUGS (1)
  1. CIPROFLOXACIN [Suspect]
     Indication: PROSTATITIS
     Dosage: 2X DAY
     Dates: start: 20100308, end: 20100314

REACTIONS (4)
  - ABASIA [None]
  - ARTHRALGIA [None]
  - INFLAMMATION [None]
  - TENDON DISORDER [None]
